FAERS Safety Report 25665095 (Version 1)
Quarter: 2025Q3

REPORT INFORMATION
  Report Type: Other
  Country: CA (occurrence: CA)
  Receive Date: 20250811
  Receipt Date: 20250811
  Transmission Date: 20251020
  Serious: Yes (Death, Other)
  Sender: APOTEX
  Company Number: CA-PGRTD-001145327

PATIENT
  Age: 68 Year
  Sex: Female

DRUGS (4)
  1. ARIPIPRAZOLE [Suspect]
     Active Substance: ARIPIPRAZOLE
     Indication: Product used for unknown indication
     Route: 065
  2. MIRTAZAPINE [Suspect]
     Active Substance: MIRTAZAPINE
     Indication: Product used for unknown indication
     Route: 065
  3. TRAZODONE [Suspect]
     Active Substance: TRAZODONE HYDROCHLORIDE
     Indication: Product used for unknown indication
     Route: 065
  4. ALCOHOL [Suspect]
     Active Substance: ALCOHOL
     Indication: Product used for unknown indication
     Route: 065

REACTIONS (9)
  - Cardiac death [Fatal]
  - Alcohol interaction [Fatal]
  - Drug interaction [Fatal]
  - Ventricular arrhythmia [Fatal]
  - Loss of consciousness [Fatal]
  - Drug-disease interaction [Fatal]
  - Cardiac failure [Fatal]
  - Accidental death [Fatal]
  - Blood alcohol increased [Fatal]
